FAERS Safety Report 17317087 (Version 1)
Quarter: 2020Q1

REPORT INFORMATION
  Report Type: Spontaneous
  Country: CZ (occurrence: CZ)
  Receive Date: 20200124
  Receipt Date: 20200124
  Transmission Date: 20200409
  Serious: Yes (Other)
  Sender: FDA-Public Use
  Company Number: CZ-MYLANLABS-2020M1007337

PATIENT
  Sex: Female

DRUGS (4)
  1. PACLITAXEL. [Suspect]
     Active Substance: PACLITAXEL
     Dosage: 175 MILLIGRAM/SQ. METER (175 MG/M2)
     Route: 065
     Dates: end: 20141030
  2. CARBOPLATIN. [Suspect]
     Active Substance: CARBOPLATIN
     Indication: OVARIAN CANCER
     Dosage: UNK UKN  (AUC 6)
     Route: 065
     Dates: end: 20120412
  3. CARBOPLATIN. [Suspect]
     Active Substance: CARBOPLATIN
     Dosage: UNK UKN (AUC 6)
     Route: 065
     Dates: end: 20141030
  4. PACLITAXEL. [Suspect]
     Active Substance: PACLITAXEL
     Indication: PRODUCT USED FOR UNKNOWN INDICATION
     Dosage: 175 MILLIGRAM/SQ. METER (175 MG/M2)
     Route: 065
     Dates: end: 20120412

REACTIONS (7)
  - Metastases to liver [Unknown]
  - Tumour marker increased [Unknown]
  - Metastasis [Unknown]
  - Metastases to lymph nodes [Unknown]
  - Ovarian cancer [Unknown]
  - Metastases to the mediastinum [Unknown]
  - Malignant neoplasm progression [Unknown]

NARRATIVE: CASE EVENT DATE: 201405
